FAERS Safety Report 17214260 (Version 7)
Quarter: 2025Q3

REPORT INFORMATION
  Report Type: Spontaneous
  Country: EU (occurrence: EU)
  Receive Date: 20191230
  Receipt Date: 20250711
  Transmission Date: 20251021
  Serious: Yes (Other)
  Sender: MYLAN
  Company Number: EU-SA-2019SA238041

PATIENT
  Age: 38 Year
  Sex: Male

DRUGS (32)
  1. EFAVIRENZ [Suspect]
     Active Substance: EFAVIRENZ
     Indication: Antiretroviral therapy
  2. EFAVIRENZ [Suspect]
     Active Substance: EFAVIRENZ
     Indication: HIV infection
  3. LAMIVUDINE [Suspect]
     Active Substance: LAMIVUDINE
     Indication: Antiretroviral therapy
  4. LOPINAVIR\RITONAVIR [Suspect]
     Active Substance: LOPINAVIR\RITONAVIR
     Indication: Antiretroviral therapy
     Dosage: UNK UNK, QD (300/75 MG BID)
     Dates: start: 2010
  5. LOPINAVIR\RITONAVIR [Suspect]
     Active Substance: LOPINAVIR\RITONAVIR
     Indication: HIV infection
     Dosage: UNK, BID (400/100 MG TWICE DAILY)
     Dates: start: 2002, end: 2010
  6. LOPINAVIR\RITONAVIR [Suspect]
     Active Substance: LOPINAVIR\RITONAVIR
     Dosage: UNK, BID (300/75 MG BID (MONOTHERAPY))
     Dates: start: 201110, end: 2013
  7. LOPINAVIR\RITONAVIR [Suspect]
     Active Substance: LOPINAVIR\RITONAVIR
     Dosage: UNK, BID (300/75 MG BID (DOSE ADJUSTMENT))
     Dates: start: 201009, end: 201110
  8. LOPINAVIR\RITONAVIR [Suspect]
     Active Substance: LOPINAVIR\RITONAVIR
  9. LOPINAVIR\RITONAVIR [Suspect]
     Active Substance: LOPINAVIR\RITONAVIR
     Dosage: UNK, QD (200/50 MG BID)
     Dates: start: 2013, end: 2013
  10. LOPINAVIR\RITONAVIR [Suspect]
     Active Substance: LOPINAVIR\RITONAVIR
     Dosage: UNK UNK, BID (300/75 MG BID)
     Dates: start: 2013, end: 201510
  11. LOPINAVIR\RITONAVIR [Suspect]
     Active Substance: LOPINAVIR\RITONAVIR
     Dosage: UNK, BID(300/75 MG BID)
     Dates: start: 2002, end: 2015
  12. LOPINAVIR\RITONAVIR [Suspect]
     Active Substance: LOPINAVIR\RITONAVIR
     Dosage: UNK UNK, BID (300/75 MG BID)
     Dates: start: 2002, end: 201510
  13. TENOFOVIR [Suspect]
     Active Substance: TENOFOVIR
     Indication: Antiretroviral therapy
  14. TENOFOVIR [Suspect]
     Active Substance: TENOFOVIR
     Indication: HIV infection
  15. TENOFOVIR [Suspect]
     Active Substance: TENOFOVIR
  16. NEVIRAPINE [Suspect]
     Active Substance: NEVIRAPINE
     Indication: Antiretroviral therapy
  17. INDINAVIR [Suspect]
     Active Substance: INDINAVIR
     Indication: Antiretroviral therapy
  18. INDINAVIR [Suspect]
     Active Substance: INDINAVIR
  19. SAQUINAVIR [Suspect]
     Active Substance: SAQUINAVIR
     Indication: Antiretroviral therapy
  20. DIDANOSINE [Suspect]
     Active Substance: DIDANOSINE
     Indication: Antiretroviral therapy
  21. DIDANOSINE [Suspect]
     Active Substance: DIDANOSINE
     Indication: HIV infection
  22. DIDANOSINE [Suspect]
     Active Substance: DIDANOSINE
  23. DIDANOSINE [Suspect]
     Active Substance: DIDANOSINE
  24. STAVUDINE [Suspect]
     Active Substance: STAVUDINE
     Indication: Antiretroviral therapy
  25. STAVUDINE [Suspect]
     Active Substance: STAVUDINE
  26. ABACAVIR [Suspect]
     Active Substance: ABACAVIR
     Indication: Antiretroviral therapy
  27. ABACAVIR [Suspect]
     Active Substance: ABACAVIR
     Indication: HIV infection
  28. NELFINAVIR [Suspect]
     Active Substance: NELFINAVIR
     Indication: Antiretroviral therapy
  29. NELFINAVIR [Suspect]
     Active Substance: NELFINAVIR
     Indication: HIV infection
  30. NELFINAVIR [Suspect]
     Active Substance: NELFINAVIR
  31. ZIDOVUDINE [Suspect]
     Active Substance: ZIDOVUDINE
     Indication: Antiretroviral therapy
  32. ZIDOVUDINE [Suspect]
     Active Substance: ZIDOVUDINE
     Indication: HIV infection

REACTIONS (23)
  - Glycosuria [Recovered/Resolved]
  - Myalgia [Recovered/Resolved]
  - Proteinuria [Recovered/Resolved]
  - Dyslipidaemia [Unknown]
  - Musculoskeletal toxicity [Recovered/Resolved]
  - Neurotoxicity [Unknown]
  - Lipodystrophy acquired [Unknown]
  - Musculoskeletal pain [Recovered/Resolved]
  - Nephropathy toxic [Recovering/Resolving]
  - Bone pain [Recovered/Resolved]
  - Fatigue [Recovered/Resolved]
  - Asthenia [Recovered/Resolved]
  - Hypophosphataemia [Recovered/Resolved]
  - Renal impairment [Recovered/Resolved]
  - Chronic kidney disease [Recovered/Resolved]
  - Fanconi syndrome [Recovered/Resolved]
  - Drug abuse [Unknown]
  - Bone metabolism disorder [Recovered/Resolved]
  - Virologic failure [Unknown]
  - Pathological fracture [Unknown]
  - Medication error [Unknown]
  - Intentional product misuse [Unknown]
  - Overdose [Unknown]

NARRATIVE: CASE EVENT DATE: 19960101
